FAERS Safety Report 13767620 (Version 1)
Quarter: 2017Q3

REPORT INFORMATION
  Report Type: Spontaneous
  Country: US (occurrence: US)
  Receive Date: 20170719
  Receipt Date: 20170719
  Transmission Date: 20171127
  Serious: No
  Sender: FDA-Public Use
  Company Number: US-WEST-WARD PHARMACEUTICALS CORP.-US-H14001-17-01020

PATIENT
  Age: 36 Year
  Sex: Male

DRUGS (6)
  1. FENTANYL. [Concomitant]
     Active Substance: FENTANYL
     Indication: SEDATIVE THERAPY
     Route: 040
     Dates: start: 201703, end: 201703
  2. KETAMINE [Concomitant]
     Active Substance: KETAMINE
     Indication: SEDATIVE THERAPY
     Route: 040
     Dates: start: 201703, end: 201703
  3. PROPOFOL. [Concomitant]
     Active Substance: PROPOFOL
     Indication: SEDATIVE THERAPY
     Route: 065
     Dates: start: 201703, end: 201703
  4. MIDAZOLAM [Suspect]
     Active Substance: MIDAZOLAM HYDROCHLORIDE
     Indication: SEDATIVE THERAPY
     Route: 042
     Dates: start: 201703, end: 201703
  5. DECADRON [Concomitant]
     Active Substance: DEXAMETHASONE
     Indication: SEDATIVE THERAPY
     Route: 065
     Dates: start: 201703, end: 201703
  6. KETAMINE [Concomitant]
     Active Substance: KETAMINE
     Route: 042
     Dates: start: 201703, end: 201703

REACTIONS (1)
  - Drug ineffective [Unknown]

NARRATIVE: CASE EVENT DATE: 201703
